FAERS Safety Report 10367935 (Version 4)
Quarter: 2015Q1

REPORT INFORMATION
  Report Type: Spontaneous
  Country: JP (occurrence: JP)
  Receive Date: 20140807
  Receipt Date: 20150313
  Transmission Date: 20150720
  Serious: Yes (Life-Threatening, Hospitalization, Other)
  Sender: FDA-Public Use
  Company Number: JP-JNJFOC-20140803038

PATIENT
  Age: 53 Year
  Sex: Female
  Weight: 56 kg

DRUGS (41)
  1. SIMPONI [Suspect]
     Active Substance: GOLIMUMAB
     Indication: RHEUMATOID ARTHRITIS
     Route: 058
     Dates: start: 20130919, end: 20130919
  2. SIMPONI [Suspect]
     Active Substance: GOLIMUMAB
     Indication: RHEUMATOID ARTHRITIS
     Route: 058
     Dates: start: 20131212, end: 20131212
  3. SIMPONI [Suspect]
     Active Substance: GOLIMUMAB
     Indication: RHEUMATOID ARTHRITIS
     Route: 058
     Dates: start: 20140610, end: 20140610
  4. SIMPONI [Suspect]
     Active Substance: GOLIMUMAB
     Indication: RHEUMATOID ARTHRITIS
     Route: 058
     Dates: start: 20130502, end: 20130502
  5. SIMPONI [Suspect]
     Active Substance: GOLIMUMAB
     Indication: RHEUMATOID ARTHRITIS
     Route: 058
     Dates: start: 20130725, end: 20130725
  6. SIMPONI [Suspect]
     Active Substance: GOLIMUMAB
     Indication: RHEUMATOID ARTHRITIS
     Route: 058
     Dates: start: 20130822, end: 20130822
  7. SIMPONI [Suspect]
     Active Substance: GOLIMUMAB
     Indication: RHEUMATOID ARTHRITIS
     Route: 058
     Dates: start: 20131114, end: 20131114
  8. SIMPONI [Suspect]
     Active Substance: GOLIMUMAB
     Indication: RHEUMATOID ARTHRITIS
     Route: 058
     Dates: start: 20140109, end: 20140109
  9. SIMPONI [Suspect]
     Active Substance: GOLIMUMAB
     Indication: RHEUMATOID ARTHRITIS
     Route: 058
     Dates: start: 20140206, end: 20140206
  10. SIMPONI [Suspect]
     Active Substance: GOLIMUMAB
     Indication: RHEUMATOID ARTHRITIS
     Route: 058
     Dates: start: 20130404, end: 20130404
  11. LIDOCAINE. [Concomitant]
     Active Substance: LIDOCAINE
     Indication: RHEUMATOID ARTHRITIS
     Dosage: 1.0 TO 2.0ML
     Route: 014
     Dates: start: 20130419, end: 20130419
  12. SIMPONI [Suspect]
     Active Substance: GOLIMUMAB
     Indication: RHEUMATOID ARTHRITIS
     Route: 058
     Dates: start: 20130627, end: 20130627
  13. SIMPONI [Suspect]
     Active Substance: GOLIMUMAB
     Indication: RHEUMATOID ARTHRITIS
     Route: 058
     Dates: start: 20130530, end: 20130530
  14. PREDNISOLONE. [Suspect]
     Active Substance: PREDNISOLONE
     Indication: RHEUMATOID ARTHRITIS
     Route: 048
     Dates: start: 20140109, end: 20140508
  15. PREDNISOLONE. [Suspect]
     Active Substance: PREDNISOLONE
     Indication: RHEUMATOID ARTHRITIS
     Route: 048
     Dates: start: 20131114, end: 20140108
  16. MUCOSTA [Concomitant]
     Active Substance: REBAMIPIDE
     Indication: GASTRITIS
     Route: 048
     Dates: start: 20121117, end: 20140729
  17. FERROMIA [Concomitant]
     Active Substance: FERROUS CITRATE
     Indication: IRON DEFICIENCY ANAEMIA
     Route: 048
     Dates: start: 20130125, end: 20130725
  18. MYSLEE [Concomitant]
     Active Substance: ZOLPIDEM TARTRATE
     Indication: INSOMNIA
     Route: 048
     Dates: start: 20140711, end: 20140711
  19. KENACORT A [Concomitant]
     Indication: RHEUMATOID ARTHRITIS
     Route: 014
     Dates: start: 20140416, end: 20140416
  20. LIDOCAINE. [Concomitant]
     Active Substance: LIDOCAINE
     Indication: RHEUMATOID ARTHRITIS
     Dosage: 1.0 TO 2.0ML
     Route: 014
     Dates: start: 20130619, end: 20130619
  21. LIDOCAINE. [Concomitant]
     Active Substance: LIDOCAINE
     Indication: RHEUMATOID ARTHRITIS
     Dosage: 0.5 TO 1.0ML
     Route: 014
     Dates: start: 20140524, end: 20140524
  22. RINDERON V [Concomitant]
     Active Substance: BETAMETHASONE VALERATE
     Indication: RHEUMATOID ARTHRITIS
     Route: 014
     Dates: start: 20130419, end: 20130419
  23. SOLU-CORTEF [Concomitant]
     Active Substance: HYDROCORTISONE SODIUM SUCCINATE
     Indication: RHEUMATOID ARTHRITIS
     Route: 041
     Dates: start: 20140708, end: 20140708
  24. SIMPONI [Suspect]
     Active Substance: GOLIMUMAB
     Indication: RHEUMATOID ARTHRITIS
     Route: 058
     Dates: start: 20131017, end: 20131017
  25. SIMPONI [Suspect]
     Active Substance: GOLIMUMAB
     Indication: RHEUMATOID ARTHRITIS
     Route: 058
     Dates: start: 20140306, end: 20140306
  26. SIMPONI [Suspect]
     Active Substance: GOLIMUMAB
     Indication: RHEUMATOID ARTHRITIS
     Route: 058
     Dates: start: 20140408, end: 20140408
  27. PREDNISOLONE. [Suspect]
     Active Substance: PREDNISOLONE
     Indication: RHEUMATOID ARTHRITIS
     Route: 048
     Dates: start: 20140509, end: 20140729
  28. PREDONINE [Concomitant]
     Active Substance: PREDNISOLONE\PREDNISOLONE ACETATE\PREDNISOLONE SODIUM SUCCINATE
     Indication: RHEUMATOID ARTHRITIS
     Route: 048
     Dates: start: 20130105, end: 20131113
  29. ISCOTIN [Concomitant]
     Active Substance: ISONIAZID
     Indication: PROPHYLAXIS
     Route: 048
     Dates: start: 20130301, end: 20140109
  30. LIDOCAINE. [Concomitant]
     Active Substance: LIDOCAINE
     Indication: RHEUMATOID ARTHRITIS
     Dosage: 0.5 TO 1.0ML
     Route: 014
     Dates: start: 20130312, end: 20130312
  31. RINDERON V [Concomitant]
     Active Substance: BETAMETHASONE VALERATE
     Indication: RHEUMATOID ARTHRITIS
     Route: 014
     Dates: start: 20130619, end: 20130619
  32. METHOTREXATE [Suspect]
     Active Substance: METHOTREXATE
     Indication: RHEUMATOID ARTHRITIS
     Route: 048
     Dates: start: 20121213, end: 20140729
  33. LOXONIN [Concomitant]
     Active Substance: LOXOPROFEN SODIUM
     Indication: RHEUMATOID ARTHRITIS
     Route: 048
     Dates: start: 20121208, end: 20140729
  34. SIMPONI [Suspect]
     Active Substance: GOLIMUMAB
     Indication: RHEUMATOID ARTHRITIS
     Route: 058
     Dates: start: 20130307, end: 20130307
  35. SIMPONI [Suspect]
     Active Substance: GOLIMUMAB
     Indication: RHEUMATOID ARTHRITIS
     Route: 058
     Dates: start: 20140711, end: 20140711
  36. FOLIC ACID. [Concomitant]
     Active Substance: FOLIC ACID
     Indication: PROPHYLAXIS
     Route: 048
     Dates: start: 20121213, end: 20140729
  37. KENACORT A [Concomitant]
     Indication: RHEUMATOID ARTHRITIS
     Route: 014
     Dates: start: 20130312, end: 20130312
  38. LACTEC [Concomitant]
     Active Substance: CALCIUM CHLORIDE ANHYDROUS\POTASSIUM CHLORIDE\SODIUM CHLORIDE\SODIUM LACTATE
     Indication: RHEUMATOID ARTHRITIS
     Route: 041
     Dates: start: 20140708, end: 20140708
  39. SIMPONI [Suspect]
     Active Substance: GOLIMUMAB
     Indication: RHEUMATOID ARTHRITIS
     Route: 058
     Dates: start: 20140509, end: 20140509
  40. LIDOCAINE. [Concomitant]
     Active Substance: LIDOCAINE
     Indication: RHEUMATOID ARTHRITIS
     Dosage: 0.5 TO 1.0ML
     Route: 014
     Dates: start: 20140416, end: 20140416
  41. KENACORT A [Concomitant]
     Indication: RHEUMATOID ARTHRITIS
     Route: 014
     Dates: start: 20140524, end: 20140524

REACTIONS (3)
  - Breast cancer [Recovering/Resolving]
  - Uterine leiomyoma [Unknown]
  - Dental caries [Unknown]

NARRATIVE: CASE EVENT DATE: 20140717
